FAERS Safety Report 8152457-0 (Version None)
Quarter: 2012Q1

REPORT INFORMATION
  Report Type: 
  Country: None (occurrence: None)
  Receive Date: 20120221
  Receipt Date: 20120209
  Transmission Date: 20120608
  Serious: Yes (Hospitalization, Other)
  Sender: FDA-Public Use
  Company Number: DK-JNJFOC-20120206120

PATIENT
  Sex: Female

DRUGS (3)
  1. HUMIRA [Suspect]
     Indication: RHEUMATOID ARTHRITIS
     Dosage: 40 (UNITS UNSPECIFIED)
     Route: 065
     Dates: start: 20110309, end: 20110321
  2. REMICADE [Suspect]
     Indication: RHEUMATOID ARTHRITIS
     Dosage: 260 (UNITS UNSPECIFIED)
     Route: 042
     Dates: start: 20041013, end: 20100721
  3. SIMPONI [Concomitant]
     Indication: RHEUMATOID ARTHRITIS
     Route: 058
     Dates: start: 20110406

REACTIONS (1)
  - MALIGNANT MELANOMA [None]
